FAERS Safety Report 6064991-8 (Version None)
Quarter: 2009Q1

REPORT INFORMATION
  Report Type: 
  Country: None (occurrence: None)
  Receive Date: 20090204
  Receipt Date: 20090128
  Transmission Date: 20090719
  Serious: Yes (Hospitalization)
  Sender: FDA-Public Use
  Company Number: US-GILEAD-2009-0020044

PATIENT
  Sex: Female
  Weight: 143.01 kg

DRUGS (8)
  1. LETAIRIS [Suspect]
     Indication: PULMONARY HYPERTENSION
     Route: 048
     Dates: start: 20071101
  2. FUROSEMIDE [Concomitant]
  3. BENICAR [Concomitant]
  4. ADVAIR DISKUS 100/50 [Concomitant]
  5. NEURONTIN [Concomitant]
  6. POTASSIUM CHLORIDE [Concomitant]
  7. HUMALOG [Concomitant]
  8. LORTAB [Concomitant]

REACTIONS (3)
  - CYSTITIS [None]
  - RENAL FAILURE CHRONIC [None]
  - SEPTIC SHOCK [None]
